FAERS Safety Report 11609257 (Version 1)
Quarter: 2015Q4

REPORT INFORMATION
  Report Type: Spontaneous
  Country: FI (occurrence: FI)
  Receive Date: 20151007
  Receipt Date: 20151007
  Transmission Date: 20160304
  Serious: Yes (Hospitalization, Other)
  Sender: FDA-Public Use
  Company Number: FI-EDGEMONT-2015EDG00037

PATIENT
  Sex: Female

DRUGS (3)
  1. SERONIL (FLUOXETINE) 20 MG [Suspect]
     Active Substance: FLUOXETINE HYDROCHLORIDE
     Dosage: UNK MG, 1X/DAY
     Route: 048
  2. ANAFRANIL [Suspect]
     Active Substance: CLOMIPRAMINE HYDROCHLORIDE
     Dosage: 75 MG, UNK
     Route: 048
  3. SEROQUEL [Suspect]
     Active Substance: QUETIAPINE FUMARATE
     Dosage: 75 MG, UNK
     Route: 048

REACTIONS (8)
  - Gestational hypertension [Unknown]
  - Induced labour [None]
  - Alanine aminotransferase increased [None]
  - Placental infarction [Unknown]
  - Proteinuria [None]
  - Exposure during pregnancy [Unknown]
  - Pre-eclampsia [Unknown]
  - Foetal death [None]
